FAERS Safety Report 5919985-7 (Version None)
Quarter: 2008Q4

REPORT INFORMATION
  Report Type: 
  Country: None (occurrence: None)
  Receive Date: 20081014
  Receipt Date: 20081007
  Transmission Date: 20090506
  Serious: Yes (Life-Threatening, Hospitalization, Other)
  Sender: FDA-Public Use
  Company Number: 2008SP020469

PATIENT
  Age: 55 Year
  Sex: Male
  Weight: 85.4 kg

DRUGS (10)
  1. PEG-INTRON [Suspect]
     Indication: MALIGNANT MELANOMA
     Dosage: 3 MCG/KG; QW; SC
     Route: 058
     Dates: start: 20070407, end: 20080930
  2. BENICAR [Concomitant]
  3. TYLENOL [Concomitant]
  4. ADVIL [Concomitant]
  5. ZOLOFT [Concomitant]
  6. VIAGRA [Concomitant]
  7. SARNA LOTION [Concomitant]
  8. TRICOR [Concomitant]
  9. ALOE VERA LOTION [Concomitant]
  10. CUTIVATE [Concomitant]

REACTIONS (7)
  - APPENDICITIS PERFORATED [None]
  - CHOLELITHIASIS [None]
  - DIARRHOEA [None]
  - NAUSEA [None]
  - RENAL FAILURE [None]
  - SEPSIS [None]
  - VOMITING [None]
